FAERS Safety Report 6662302-8 (Version None)
Quarter: 2010Q1

REPORT INFORMATION
  Report Type: 
  Country: None (occurrence: None)
  Receive Date: 20100331
  Receipt Date: 20100318
  Transmission Date: 20100710
  Serious: Yes (Other)
  Sender: FDA-Public Use
  Company Number: PHHY2010BR16864

PATIENT
  Age: 75 Year
  Sex: Male
  Weight: 76 kg

DRUGS (6)
  1. DIOVAN [Suspect]
     Indication: BLOOD PRESSURE
     Dosage: 1 TABLET (320 MG) IN THE MORNING
     Route: 048
     Dates: start: 20060101
  2. EXELON [Suspect]
     Indication: MEMORY IMPAIRMENT
     Dosage: 1 DF, BID
     Route: 048
     Dates: start: 20090601
  3. ADALAT [Concomitant]
     Indication: BLOOD PRESSURE
     Dosage: 1 TABLET (30 MG) AT NIGHT
     Route: 048
     Dates: start: 20060101
  4. ADALAT [Concomitant]
     Dosage: 0.5 TABLET (30 MG) AT NIGHT
     Dates: end: 20100217
  5. CAPTOPRIL [Concomitant]
     Indication: BLOOD PRESSURE
     Dosage: 25 MG, UNK
     Route: 048
     Dates: start: 20060101
  6. DOXAZOSIN MESYLATE [Concomitant]
     Indication: PROSTATOMEGALY
     Dosage: 1 TABLET (2 MG) DAILY
     Route: 048
     Dates: start: 20090901

REACTIONS (7)
  - BENIGN PROSTATIC HYPERPLASIA [None]
  - BLOOD PRESSURE INCREASED [None]
  - BRADYCARDIA [None]
  - HEART RATE IRREGULAR [None]
  - HYPOTENSION [None]
  - MEMORY IMPAIRMENT [None]
  - STRESS [None]
